FAERS Safety Report 8237761-X (Version None)
Quarter: 2012Q1

REPORT INFORMATION
  Report Type: 
  Country: None (occurrence: None)
  Receive Date: 20120327
  Receipt Date: 20120323
  Transmission Date: 20120608
  Serious: Yes (Hospitalization, Disabling, Other)
  Sender: FDA-Public Use
  Company Number: US-TEVA-313114USA

PATIENT
  Sex: Female

DRUGS (6)
  1. OLANZAPINE [Suspect]
     Indication: PSYCHOTIC DISORDER
     Dosage: AS NEEDED
     Route: 048
     Dates: start: 20111101
  2. CLOZAPINE [Suspect]
     Indication: PSYCHOTIC DISORDER
     Dosage: 75 MG IN AM, 50 MG HS
     Route: 048
  3. LITHIUM CARBONATE [Suspect]
     Dosage: 900 MILLIGRAM;
  4. QUETIAPINE [Concomitant]
  5. BENZTROPINE MESYLATE [Suspect]
  6. ZOLPIDEM TARTRATE [Concomitant]

REACTIONS (64)
  - STATUS EPILEPTICUS [None]
  - PSYCHOTIC DISORDER [None]
  - DEMENTIA [None]
  - HYPERSOMNIA [None]
  - VOMITING [None]
  - ABDOMINAL PAIN [None]
  - WEIGHT INCREASED [None]
  - INSOMNIA [None]
  - VISION BLURRED [None]
  - BOWEL MOVEMENT IRREGULARITY [None]
  - DRUG PRESCRIBING ERROR [None]
  - TOOTH DECALCIFICATION [None]
  - TOOTHACHE [None]
  - CHOKING [None]
  - SLEEP DISORDER [None]
  - DENTAL CARIES [None]
  - PANIC REACTION [None]
  - PYREXIA [None]
  - MENTAL IMPAIRMENT [None]
  - PALPITATIONS [None]
  - MOOD ALTERED [None]
  - CONFUSIONAL STATE [None]
  - DECREASED INTEREST [None]
  - MOVEMENT DISORDER [None]
  - OCULAR ICTERUS [None]
  - SPEECH DISORDER [None]
  - ANXIETY [None]
  - DYSPNOEA [None]
  - HEADACHE [None]
  - OVERDOSE [None]
  - PAIN [None]
  - DISCOMFORT [None]
  - MALAISE [None]
  - FEELING ABNORMAL [None]
  - DELIRIUM [None]
  - OCULAR HYPERAEMIA [None]
  - INFLUENZA LIKE ILLNESS [None]
  - AKATHISIA [None]
  - BONE PAIN [None]
  - SUICIDAL IDEATION [None]
  - AGGRESSION [None]
  - STUPOR [None]
  - HEART RATE INCREASED [None]
  - COGNITIVE DISORDER [None]
  - DISTURBANCE IN ATTENTION [None]
  - NAUSEA [None]
  - MYDRIASIS [None]
  - BACK PAIN [None]
  - DEPRESSION [None]
  - HYPOAESTHESIA [None]
  - MUSCLE SPASMS [None]
  - ABDOMINAL DISTENSION [None]
  - SELF INJURIOUS BEHAVIOUR [None]
  - CONVULSION [None]
  - TOXICITY TO VARIOUS AGENTS [None]
  - LOSS OF CONSCIOUSNESS [None]
  - YELLOW SKIN [None]
  - ASTHENIA [None]
  - PAROSMIA [None]
  - OFF LABEL USE [None]
  - PAIN IN EXTREMITY [None]
  - CONSTIPATION [None]
  - MYALGIA [None]
  - AGITATION [None]
